FAERS Safety Report 9885452 (Version 7)
Quarter: 2020Q1

REPORT INFORMATION
  Report Type: Spontaneous
  Country: US (occurrence: US)
  Receive Date: 20140210
  Receipt Date: 20200320
  Transmission Date: 20200409
  Serious: Yes (Hospitalization, Other)
  Sender: FDA-Public Use
  Company Number: US-BIOMARINAP-US-2014-102491

PATIENT
  Age: 43 Year
  Sex: Female

DRUGS (2)
  1. ALDURAZYME [Suspect]
     Active Substance: LARONIDASE
     Indication: MUCOPOLYSACCHARIDOSIS I
     Dosage: 26.1 MILLIGRAM, QW
     Route: 041
     Dates: start: 20120411
  2. ALDURAZYME [Suspect]
     Active Substance: LARONIDASE
     Dosage: 26.1 MILLIGRAM, QW
     Route: 042
     Dates: start: 20180402

REACTIONS (18)
  - Cardiac failure congestive [Unknown]
  - Blindness unilateral [Not Recovered/Not Resolved]
  - Visual impairment [Unknown]
  - Gastric disorder [Recovering/Resolving]
  - Fall [Unknown]
  - Condition aggravated [Unknown]
  - Pulmonary oedema [Recovering/Resolving]
  - Spinal cord disorder [Unknown]
  - Gastrooesophageal reflux disease [Recovering/Resolving]
  - Dyspnoea [Recovering/Resolving]
  - Thrombosis [Recovered/Resolved]
  - Cardiac failure [Unknown]
  - Eye operation [Unknown]
  - Blindness transient [Recovered/Resolved]
  - Head injury [Unknown]
  - Oedema peripheral [Recovering/Resolving]
  - Haemoglobin decreased [Recovering/Resolving]
  - International normalised ratio increased [Recovering/Resolving]

NARRATIVE: CASE EVENT DATE: 20140125
